FAERS Safety Report 5054583-1 (Version None)
Quarter: 2006Q2

REPORT INFORMATION
  Report Type: 
  Country: None (occurrence: None)
  Receive Date: 20060616
  Receipt Date: 20060412
  Transmission Date: 20061013
  Serious: No
  Sender: FDA-Public Use
  Company Number: 2006US000839

PATIENT
  Age: 79 Year
  Sex: Male

DRUGS (3)
  1. VESICARE [Suspect]
     Indication: HYPERTONIC BLADDER
  2. GLIPIZIDE (GLIPIZIDE) TABLET [Concomitant]
  3. AVANDIA [Concomitant]

REACTIONS (2)
  - BALANCE DISORDER [None]
  - LETHARGY [None]
